FAERS Safety Report 14267599 (Version 1)
Quarter: 2017Q4

REPORT INFORMATION
  Report Type: Spontaneous
  Country: GB (occurrence: GB)
  Receive Date: 20171210
  Receipt Date: 20171210
  Transmission Date: 20180321
  Serious: Yes (Hospitalization)
  Sender: FDA-Public Use
  Company Number: None

PATIENT
  Age: 28 Year
  Sex: Female
  Weight: 61 kg

DRUGS (4)
  1. STEROID CREAM (ALL WELL KNOWN VARIETIES) [Suspect]
     Active Substance: UNSPECIFIED INGREDIENT
     Indication: ECZEMA
     Route: 061
     Dates: end: 20161021
  2. FEXOFENADINE HYDROCHLORIDE. [Concomitant]
     Active Substance: FEXOFENADINE HYDROCHLORIDE
  3. SALBUTOMOL ASTHMA INHALER [Concomitant]
  4. MONTELUKAST [Concomitant]
     Active Substance: MONTELUKAST SODIUM

REACTIONS (4)
  - Eczema [None]
  - Discomfort [None]
  - Impaired work ability [None]
  - Therapy cessation [None]

NARRATIVE: CASE EVENT DATE: 20161021
